FAERS Safety Report 11288852 (Version 1)
Quarter: 2015Q3

REPORT INFORMATION
  Report Type: Spontaneous
  Country: US (occurrence: US)
  Receive Date: 20150721
  Receipt Date: 20150721
  Transmission Date: 20151125
  Serious: No
  Sender: FDA-Public Use
  Company Number: US-UNITED THERAPEUTICS-UNT-2015-004500

PATIENT
  Sex: Female
  Weight: 52.15 kg

DRUGS (2)
  1. COUMADIN [Concomitant]
     Active Substance: WARFARIN SODIUM
     Indication: PRODUCT USED FOR UNKNOWN INDICATION
  2. REMODULIN [Suspect]
     Active Substance: TREPROSTINIL
     Indication: PULMONARY ARTERIAL HYPERTENSION
     Dosage: 0.053 ?G/KG/MIN, CONTINUING
     Route: 041
     Dates: start: 20110907

REACTIONS (7)
  - Dyspnoea [Unknown]
  - Device use error [Unknown]
  - Pain in extremity [Unknown]
  - Anxiety [Unknown]
  - Drug dose omission [Unknown]
  - Muscle spasms [Unknown]
  - Arthralgia [Unknown]
